FAERS Safety Report 22752174 (Version 2)
Quarter: 2023Q4

REPORT INFORMATION
  Report Type: Report from Study
  Country: MX (occurrence: MX)
  Receive Date: 20230726
  Receipt Date: 20231205
  Transmission Date: 20240109
  Serious: Yes (Other)
  Sender: FDA-Public Use
  Company Number: MX-ELI_LILLY_AND_COMPANY-MX202305009229

PATIENT
  Sex: Female

DRUGS (4)
  1. VERZENIO [Suspect]
     Active Substance: ABEMACICLIB
     Indication: Product used for unknown indication
     Dosage: 150 MG, UNKNOWN
     Route: 048
     Dates: start: 20230502
  2. VERZENIO [Suspect]
     Active Substance: ABEMACICLIB
     Dosage: 100 MG, BID (EVERY 12 HOURS)
     Route: 048
     Dates: start: 20230711
  3. ERYTHROPOIETIN [Concomitant]
     Active Substance: ERYTHROPOIETIN
     Indication: Product used for unknown indication
  4. PROLIA [Concomitant]
     Active Substance: DENOSUMAB
     Indication: Bone disorder

REACTIONS (12)
  - Renal failure [Recovered/Resolved]
  - White blood cell count decreased [Unknown]
  - Haemoglobin decreased [Unknown]
  - Platelet count decreased [Unknown]
  - Dizziness postural [Unknown]
  - Tremor [Unknown]
  - Taste disorder [Unknown]
  - Insomnia [Unknown]
  - Pain [Unknown]
  - Fatigue [Unknown]
  - Blood creatinine increased [Unknown]
  - Nausea [Not Recovered/Not Resolved]
